FAERS Safety Report 25649360 (Version 1)
Quarter: 2025Q3

REPORT INFORMATION
  Report Type: Spontaneous
  Country: US (occurrence: None)
  Receive Date: 20250806
  Receipt Date: 20250806
  Transmission Date: 20251020
  Serious: Yes (Hospitalization)
  Sender: FDA-CTU
  Company Number: None

PATIENT
  Age: 50 Year
  Sex: Female
  Weight: 44.8 kg

DRUGS (1)
  1. XELODA [Suspect]
     Active Substance: CAPECITABINE
     Dates: end: 20250723

REACTIONS (3)
  - Pericardial effusion [None]
  - Cardiac tamponade [None]
  - Tachycardia [None]

NARRATIVE: CASE EVENT DATE: 20250731
